FAERS Safety Report 9680615 (Version 1)
Quarter: 2013Q4

REPORT INFORMATION
  Report Type: Spontaneous
  Country: US (occurrence: US)
  Receive Date: 20131111
  Receipt Date: 20131111
  Transmission Date: 20140711
  Serious: No
  Sender: FDA-Public Use
  Company Number: US-PFIZER INC-2013320480

PATIENT
  Age: 62 Year
  Sex: Female
  Weight: 58.05 kg

DRUGS (1)
  1. NEURONTIN [Suspect]
     Indication: NERVE INJURY
     Dosage: 350 MG, 2X/DAY
     Dates: start: 2012

REACTIONS (2)
  - Off label use [Unknown]
  - Nervousness [Unknown]
